FAERS Safety Report 9485927 (Version 1)
Quarter: 2013Q3

REPORT INFORMATION
  Report Type: Spontaneous
  Country: US (occurrence: US)
  Receive Date: 20130829
  Receipt Date: 20130829
  Transmission Date: 20140515
  Serious: No
  Sender: FDA-Public Use
  Company Number: US-GLAXOSMITHKLINE-A1035441A

PATIENT
  Age: 34 Year
  Sex: Female

DRUGS (2)
  1. ZOVIRAX [Suspect]
     Indication: ORAL HERPES
     Route: 061
     Dates: start: 20130424
  2. CONTRACEPTIVE PILL [Concomitant]
     Indication: CONTRACEPTION
     Route: 048

REACTIONS (2)
  - Application site pain [Recovering/Resolving]
  - Application site discolouration [Recovering/Resolving]
